FAERS Safety Report 12370602 (Version 1)
Quarter: 2016Q2

REPORT INFORMATION
  Report Type: Spontaneous
  Country: US (occurrence: None)
  Receive Date: 20160513
  Receipt Date: 20160513
  Transmission Date: 20160815
  Serious: No
  Sender: FDA-Public Use
  Company Number: None

PATIENT
  Sex: Male

DRUGS (2)
  1. STIVARGA [Suspect]
     Active Substance: REGORAFENIB
     Indication: COLON CANCER
     Dosage: 40MG X 4 = 160MG
     Route: 048
     Dates: start: 201604
  2. GLEEVEC [Concomitant]
     Active Substance: IMATINIB MESYLATE

REACTIONS (5)
  - Palmar-plantar erythrodysaesthesia syndrome [None]
  - Skin reaction [None]
  - Blister [None]
  - Drug dose omission [None]
  - Kidney infection [None]

NARRATIVE: CASE EVENT DATE: 2016
